FAERS Safety Report 7527127-X (Version None)
Quarter: 2011Q2

REPORT INFORMATION
  Report Type: 
  Country: None (occurrence: None)
  Receive Date: 20110607
  Receipt Date: 20110530
  Transmission Date: 20111010
  Serious: Yes (Hospitalization)
  Sender: FDA-Public Use
  Company Number: HU-BRISTOL-MYERS SQUIBB COMPANY-15639537

PATIENT
  Age: 58 Year
  Sex: Male
  Weight: 55 kg

DRUGS (3)
  1. CETUXIMAB [Suspect]
     Indication: HEAD AND NECK CANCER
     Dosage: MOST RECENT DOSE ON 20DEC2010, STRENGTH=5MG/ML NO OF INF:19
     Route: 042
     Dates: start: 20100816, end: 20101220
  2. CISPLATIN [Suspect]
     Indication: HEAD AND NECK CANCER
     Dosage: MOST RECENT DOSE ON 13DEC2010, NO OF INFUSIONS=6
     Route: 042
     Dates: start: 20100816
  3. FLUOROURACIL [Suspect]
     Indication: HEAD AND NECK CANCER
     Dosage: MOST RECENT DOSE ON 17DEC2010, NO OF INFUSIONS=6,  CONT INFUSION FROM DAY1 TO DAY 4 OF CYCLE
     Route: 042
     Dates: start: 20100816

REACTIONS (2)
  - DEHYDRATION [None]
  - PHLEBITIS [None]
